FAERS Safety Report 15244235 (Version 1)
Quarter: 2018Q3

REPORT INFORMATION
  Report Type: Spontaneous
  Country: IT (occurrence: IT)
  Receive Date: 20180806
  Receipt Date: 20180806
  Transmission Date: 20181010
  Serious: Yes (Hospitalization)
  Sender: FDA-Public Use
  Company Number: IT-VERNALIS THERAPEUTICS, INC.-2018VRN00025

PATIENT
  Age: 7 Year
  Sex: Male

DRUGS (1)
  1. AMOXICILLIN. [Suspect]
     Active Substance: AMOXICILLIN
     Indication: PYREXIA
     Dosage: 10 ML, 2X/DAY (5 G/100 ML)
     Route: 048

REACTIONS (2)
  - Hallucinations, mixed [Recovered/Resolved]
  - Acute psychosis [Recovered/Resolved]
